FAERS Safety Report 6415715-3 (Version None)
Quarter: 2009Q4

REPORT INFORMATION
  Report Type: 
  Country: None (occurrence: None)
  Receive Date: 20091027
  Receipt Date: 20091014
  Transmission Date: 20100525
  Serious: Yes (Hospitalization)
  Sender: FDA-Public Use
  Company Number: JP-PFIZER INC-2008095896

PATIENT
  Age: 71 Year

DRUGS (10)
  1. SUNITINIB MALATE [Suspect]
     Indication: GASTROINTESTINAL STROMAL TUMOUR
     Dosage: 50 MG, 1X/DAY
     Route: 048
     Dates: start: 20080918, end: 20091015
  2. MAGNESIUM OXIDE [Concomitant]
  3. MYSLEE [Concomitant]
  4. OXINORM [Concomitant]
  5. OXYCONTIN [Concomitant]
  6. MYSER [Concomitant]
     Dates: start: 20081001
  7. SERENAL [Concomitant]
  8. GASTER [Concomitant]
  9. CALONAL [Concomitant]
     Dates: start: 20081001
  10. ISODINE [Concomitant]
     Dates: start: 20081002

REACTIONS (3)
  - GASTROINTESTINAL HAEMORRHAGE [None]
  - HAEMOGLOBIN DECREASED [None]
  - PLATELET COUNT DECREASED [None]
